FAERS Safety Report 22056933 (Version 4)
Quarter: 2024Q2

REPORT INFORMATION
  Report Type: Spontaneous
  Country: IE (occurrence: IE)
  Receive Date: 20230303
  Receipt Date: 20240626
  Transmission Date: 20240716
  Serious: Yes (Death, Other)
  Sender: FDA-Public Use
  Company Number: None

PATIENT
  Age: 40 Year
  Sex: Female

DRUGS (1)
  1. COPAXONE [Suspect]
     Active Substance: GLATIRAMER ACETATE
     Indication: Multiple sclerosis
     Dosage: DOSAGE TEXT: GLATIRAMER ACETATE MORE THAN 1 YEAR 3 TIMES A WEEK ACCORDING TO PROTOCOL. HAD BEEN O...
     Route: 065
     Dates: start: 2021

REACTIONS (6)
  - Anaphylactic shock [Fatal]
  - Cardiac arrest [Fatal]
  - Brain hypoxia [Fatal]
  - Cerebral ischaemia [Fatal]
  - Injection site reaction [Unknown]
  - Loss of consciousness [Unknown]

NARRATIVE: CASE EVENT DATE: 20210101
